FAERS Safety Report 12345566 (Version 1)
Quarter: 2016Q2

REPORT INFORMATION
  Report Type: Other
  Country: GB (occurrence: GB)
  Receive Date: 20160509
  Receipt Date: 20160509
  Transmission Date: 20160815
  Serious: Yes (Other)
  Sender: FDA-Public Use
  Company Number: GB-LUPIN PHARMACEUTICALS INC.-2016-01434

PATIENT
  Sex: 0

DRUGS (1)
  1. QUININE [Suspect]
     Active Substance: QUININE
     Indication: MUSCLE SPASMS
     Dosage: 300 MG
     Route: 065

REACTIONS (1)
  - Optic neuritis [Unknown]
